FAERS Safety Report 4356970-3 (Version None)
Quarter: 2004Q2

REPORT INFORMATION
  Report Type: 
  Country: None (occurrence: None)
  Receive Date: 20040507
  Receipt Date: 20040503
  Transmission Date: 20050107
  Serious: Yes (Hospitalization)
  Sender: FDA-Public Use
  Company Number: AU-JNJFOC-20040306293

PATIENT
  Age: 40 Year
  Sex: Male

DRUGS (11)
  1. REMICADE [Suspect]
     Indication: CROHN'S DISEASE
     Dosage: IN 1 AS NECESSARY, INTRAVENOUS DRIP : 150 ML, 1 IN 1 AS NECESSARY
     Route: 041
     Dates: start: 20040202, end: 20040202
  2. REMICADE [Suspect]
     Indication: CROHN'S DISEASE
     Dosage: IN 1 AS NECESSARY, INTRAVENOUS DRIP : 150 ML, 1 IN 1 AS NECESSARY
     Route: 041
     Dates: start: 20040326, end: 20040326
  3. NOVOMIX           (INSULIN ASPART) [Concomitant]
  4. SERETIDE [Concomitant]
  5. VENTOLIN [Concomitant]
  6. AZATHIOPRINE [Concomitant]
  7. SLOW-K [Concomitant]
  8. METFORMIN HCL [Concomitant]
  9. ACETAMINOPHEN [Concomitant]
  10. DEXAMETHASONE [Concomitant]
  11. PHENERGAN [Concomitant]

REACTIONS (5)
  - ANXIETY [None]
  - CHEST DISCOMFORT [None]
  - EMOTIONAL DISTRESS [None]
  - RASH GENERALISED [None]
  - RASH MACULO-PAPULAR [None]
